FAERS Safety Report 5124390-X (Version None)
Quarter: 2006Q4

REPORT INFORMATION
  Report Type: 
  Country: None (occurrence: None)
  Receive Date: 20060816
  Receipt Date: 20060425
  Transmission Date: 20070319
  Serious: No
  Sender: FDA-Public Use
  Company Number: US200604004234

PATIENT
  Sex: Male

DRUGS (2)
  1. CIALIS [Suspect]
     Indication: ERECTILE DYSFUNCTION
  2. DETROL - SLOW RELEASE (TOLTERODINE L-TARTRATE) [Concomitant]

REACTIONS (2)
  - DRUG INEFFECTIVE [None]
  - HEADACHE [None]
